FAERS Safety Report 6819516-3 (Version None)
Quarter: 2010Q3

REPORT INFORMATION
  Report Type: 
  Country: None (occurrence: None)
  Receive Date: 20100707
  Receipt Date: 20100625
  Transmission Date: 20110219
  Serious: Yes (Other)
  Sender: FDA-Public Use
  Company Number: PHHY2010BR41874

PATIENT
  Age: 18 Year
  Sex: Female
  Weight: 70 kg

DRUGS (12)
  1. TRILEPTAL [Suspect]
     Indication: MENTAL DISORDER
     Route: 048
  2. HYDROCHLOROTHIAZIDE [Suspect]
     Dosage: 12 TABLETS
     Dates: start: 20100625
  3. ALPRAZOLAM [Suspect]
  4. ESCITALOPRAM [Suspect]
  5. OMEPRAZOLE [Suspect]
     Dosage: 20 TABLET
     Dates: start: 20100625
  6. METHYLDOPA [Suspect]
     Dosage: 10 TABLETS
     Dates: start: 20100625
  7. ORPHENADRINE CITRATE [Suspect]
  8. CAFFEINE [Suspect]
  9. DIPYRONE [Suspect]
  10. DIMENHYDRINATE [Suspect]
     Dosage: 8 TABLETS
     Dates: start: 20100625
  11. NORFLOXACIN [Suspect]
     Dosage: 14 TABLETS
     Dates: start: 20100625
  12. KETOPROFEN [Suspect]
     Dosage: 20 TABLETS
     Dates: start: 20100625

REACTIONS (3)
  - GASTRIC LAVAGE [None]
  - MULTIPLE DRUG OVERDOSE INTENTIONAL [None]
  - SUICIDE ATTEMPT [None]
